FAERS Safety Report 20170317 (Version 1)
Quarter: 2021Q4

REPORT INFORMATION
  Report Type: Spontaneous
  Country: US (occurrence: US)
  Receive Date: 20211210
  Receipt Date: 20211210
  Transmission Date: 20220304
  Serious: No
  Sender: FDA-Public Use
  Company Number: US-BAYER-2021A260204

PATIENT
  Age: 63 Year
  Sex: Female

DRUGS (4)
  1. MIRALAX [Suspect]
     Active Substance: POLYETHYLENE GLYCOL 3350
     Indication: Colonoscopy
     Dosage: UNK (7 DAY DOSE WITH 32 OZ OF GATORADE DOSE)
     Route: 048
     Dates: start: 20211123, end: 20211123
  2. MIRALAX [Suspect]
     Active Substance: POLYETHYLENE GLYCOL 3350
     Indication: Colonoscopy
     Dosage: UNK (7 DAY DOSE WITH 32 OZ OF GATORADE DOSE)
     Route: 048
     Dates: start: 20211124, end: 20211124
  3. PROGESTERONE [Concomitant]
     Active Substance: PROGESTERONE
  4. PREMARIN [Concomitant]
     Active Substance: ESTROGENS, CONJUGATED

REACTIONS (5)
  - Expired product administered [None]
  - Inappropriate schedule of product administration [Unknown]
  - Haemorrhoids [Not Recovered/Not Resolved]
  - Wrong technique in product usage process [None]
  - Product use in unapproved indication [None]

NARRATIVE: CASE EVENT DATE: 20211123
